FAERS Safety Report 16970664 (Version 2)
Quarter: 2019Q4

REPORT INFORMATION
  Report Type: Spontaneous
  Country: US (occurrence: US)
  Receive Date: 20191029
  Receipt Date: 20191029
  Transmission Date: 20200122
  Serious: Yes (Hospitalization, Other)
  Sender: FDA-Public Use
  Company Number: US-BIOVITRUM-2019US3769

PATIENT
  Sex: Female

DRUGS (1)
  1. ANAKINRA [Suspect]
     Active Substance: ANAKINRA

REACTIONS (6)
  - Hemiparesis [Unknown]
  - Hypersomnia [Unknown]
  - Intestinal haemorrhage [Unknown]
  - Seizure [Unknown]
  - Diarrhoea [Unknown]
  - Hypotonia [Unknown]
